FAERS Safety Report 16503054 (Version 1)
Quarter: 2019Q3

REPORT INFORMATION
  Report Type: Other
  Country: None (occurrence: TR)
  Receive Date: 20190701
  Receipt Date: 20190701
  Transmission Date: 20191004
  Serious: Yes (Hospitalization)
  Sender: FDA-Public Use
  Company Number: TR-B. BRAUN MEDICAL INC.-2070100

PATIENT
  Age: 42 Year
  Sex: Male

DRUGS (1)
  1. CEFTRIAXONE FOR INJECTION AND DEXTROSE INJECTION 0264-3153-11 (NDA 050 [Suspect]
     Active Substance: CEFTRIAXONE SODIUM

REACTIONS (1)
  - Kounis syndrome [None]
